FAERS Safety Report 6117897-X (Version None)
Quarter: 2009Q1

REPORT INFORMATION
  Report Type: 
  Country: None (occurrence: None)
  Receive Date: 20090314
  Receipt Date: 20090129
  Transmission Date: 20090719
  Serious: No
  Sender: FDA-Public Use
  Company Number: US-ABBOTT-09P-163-0501138-00

PATIENT
  Sex: Female
  Weight: 65.83 kg

DRUGS (4)
  1. HUMIRA [Suspect]
     Indication: CROHN'S DISEASE
     Route: 058
     Dates: start: 20071001
  2. PENTASA [Concomitant]
     Indication: CROHN'S DISEASE
     Route: 048
  3. LOVRAL [Concomitant]
     Indication: CONTRACEPTION
     Dosage: UNKNOWN
     Route: 048
  4. MULTI-VITAMIN [Concomitant]
     Indication: MEDICAL DIET
     Dosage: UNKNOWN
     Route: 048

REACTIONS (1)
  - PSORIASIS [None]
